FAERS Safety Report 8979616 (Version 1)
Quarter: 2012Q4

REPORT INFORMATION
  Report Type: 
  Country: BR (occurrence: BR)
  Receive Date: 20121221
  Receipt Date: 20121221
  Transmission Date: 20130627
  Serious: Yes (Other)
  Sender: FDA-Public Use
  Company Number: BR-MYLANLABS-2012S1025567

PATIENT
  Age: 79 Year
  Sex: Male

DRUGS (4)
  1. MODAFINIL [Suspect]
     Indication: HYPERSOMNIA
     Dosage: 100 mg/day
     Route: 065
  2. MODAFINIL [Suspect]
     Indication: HYPERSOMNIA
     Dosage: 50mg
     Route: 065
  3. OLANZAPINE [Concomitant]
     Indication: HALLUCINATION
     Dosage: titrated up to 7.5 mg/day
     Route: 065
  4. MEMANTINE [Concomitant]
     Dosage: titrated up to 10mg twice per day
     Route: 065

REACTIONS (2)
  - Dementia with Lewy bodies [Recovering/Resolving]
  - Condition aggravated [Recovering/Resolving]
